FAERS Safety Report 23226930 (Version 1)
Quarter: 2023Q4

REPORT INFORMATION
  Report Type: Report from Study
  Country: US (occurrence: None)
  Receive Date: 20231124
  Receipt Date: 20231124
  Transmission Date: 20240110
  Serious: Yes (Death)
  Sender: FDA-Public Use
  Company Number: 2023A265192

PATIENT
  Sex: Male
  Weight: 79.4 kg

DRUGS (20)
  1. CALQUENCE [Suspect]
     Active Substance: ACALABRUTINIB
     Indication: Chronic lymphocytic leukaemia
     Route: 048
  2. ALLOPURINOL [Concomitant]
     Active Substance: ALLOPURINOL
  3. GABAPENTIN [Concomitant]
     Active Substance: GABAPENTIN
  4. IMMUN GLOB G [Concomitant]
  5. PANTOPRAZOLE [Concomitant]
     Active Substance: PANTOPRAZOLE
  6. PREDNISONE [Concomitant]
     Active Substance: PREDNISONE
  7. SENNOSIDES [Concomitant]
     Active Substance: SENNOSIDES
  8. PERCOCET [Concomitant]
     Active Substance: ACETAMINOPHEN\OXYCODONE HYDROCHLORIDE
  9. FENTANYL [Concomitant]
     Active Substance: FENTANYL\FENTANYL CITRATE
  10. METFORMIN HYDROCHLORIDE [Concomitant]
     Active Substance: METFORMIN HYDROCHLORIDE
  11. MULTI-VITAMINS [Concomitant]
  12. LAXATIVE PILLS [Concomitant]
     Active Substance: SENNOSIDES
  13. ZOFRAN [Concomitant]
     Active Substance: ONDANSETRON HYDROCHLORIDE
  14. BEE POLLEEN [Concomitant]
  15. BLACK ELDERBERRY [Concomitant]
  16. LORAZEPAM [Concomitant]
     Active Substance: LORAZEPAM
  17. PHAZYME [Concomitant]
     Active Substance: DIMETHICONE 410
  18. DOCUSATE [Concomitant]
     Active Substance: DOCUSATE
  19. POLYETHYLENE GLYCOL [Concomitant]
     Active Substance: POLYETHYLENE GLYCOL
  20. LACTULOSE [Concomitant]
     Active Substance: LACTULOSE

REACTIONS (1)
  - Death [Fatal]
